FAERS Safety Report 4635661-5 (Version None)
Quarter: 2005Q2

REPORT INFORMATION
  Report Type: 
  Country: None (occurrence: None)
  Receive Date: 20050414
  Receipt Date: 20050408
  Transmission Date: 20051028
  Serious: No
  Sender: FDA-Public Use
  Company Number: 2005-127148-NL

PATIENT
  Age: 27 Year
  Sex: Male

DRUGS (1)
  1. MIRTAZAPINE [Suspect]
     Indication: DEPRESSION
     Dosage: 45 MG
     Route: 048
     Dates: end: 20050301

REACTIONS (5)
  - COORDINATION ABNORMAL [None]
  - DIFFICULTY IN WALKING [None]
  - DIZZINESS [None]
  - FATIGUE [None]
  - MUSCULOSKELETAL STIFFNESS [None]
